FAERS Safety Report 5386936-6 (Version None)
Quarter: 2007Q3

REPORT INFORMATION
  Report Type: 
  Country: None (occurrence: None)
  Receive Date: 20070713
  Receipt Date: 20070703
  Transmission Date: 20080115
  Serious: Yes (Death, Life-Threatening)
  Sender: FDA-Public Use
  Company Number: JP-PFIZER INC-2007054610

PATIENT
  Age: 78 Year
  Sex: Male

DRUGS (6)
  1. ZYVOX [Suspect]
     Dosage: DAILY DOSE:1200MG
     Route: 042
     Dates: start: 20070427, end: 20070502
  2. FINIBAX [Concomitant]
     Route: 042
  3. PRIDOL [Concomitant]
     Route: 042
  4. AVELOX [Concomitant]
     Route: 048
     Dates: start: 20070427, end: 20070430
  5. BACTRIM [Concomitant]
     Route: 048
     Dates: start: 20070425, end: 20070502
  6. HOKUNALIN [Concomitant]
     Route: 062
     Dates: start: 20070427, end: 20070504

REACTIONS (2)
  - DEATH [None]
  - PLATELET COUNT DECREASED [None]
